FAERS Safety Report 22766650 (Version 3)
Quarter: 2024Q1

REPORT INFORMATION
  Report Type: Spontaneous
  Country: US (occurrence: US)
  Receive Date: 20230731
  Receipt Date: 20240222
  Transmission Date: 20240410
  Serious: Yes (Other)
  Sender: FDA-Public Use
  Company Number: US-PFIZER INC-202300262147

PATIENT
  Age: 51 Year
  Sex: Female
  Weight: 104.33 kg

DRUGS (6)
  1. XELJANZ XR [Suspect]
     Active Substance: TOFACITINIB CITRATE
     Indication: Rheumatoid arthritis
     Dosage: ONE TABLET DAILY
     Route: 048
     Dates: start: 202305
  2. XELJANZ XR [Suspect]
     Active Substance: TOFACITINIB CITRATE
     Indication: Rheumatoid arthritis
  3. PREDNISONE [Suspect]
     Active Substance: PREDNISONE
     Dosage: 150 MG
     Dates: start: 20230713
  4. LEFLUNOMIDE [Concomitant]
     Active Substance: LEFLUNOMIDE
     Dosage: BEEN ON LEFLUNOMIDE FOR OVER A YEAR
  5. ORENCIA [Concomitant]
     Active Substance: ABATACEPT
     Dosage: UNK, WEEKLY
  6. AZATHIOPRINE [Concomitant]
     Active Substance: AZATHIOPRINE
     Dosage: 50 MG 2 TABS QD (ONCE A DAY)

REACTIONS (6)
  - Cytomegalovirus infection [Unknown]
  - Expired product administered [Unknown]
  - Somnolence [Unknown]
  - Crying [Unknown]
  - Fatigue [Unknown]
  - Illness [Unknown]

NARRATIVE: CASE EVENT DATE: 20230714
